FAERS Safety Report 6292545-7 (Version None)
Quarter: 2009Q3

REPORT INFORMATION
  Report Type: 
  Country: None (occurrence: None)
  Receive Date: 20090731
  Receipt Date: 20090721
  Transmission Date: 20100115
  Serious: Yes (Other)
  Sender: FDA-Public Use
  Company Number: DK-PFIZER INC-2009244476

PATIENT

DRUGS (3)
  1. EPIRUBICIN HCL [Suspect]
     Indication: CHEMOTHERAPY
     Dosage: UNK
     Dates: start: 20071026, end: 20080220
  2. CYCLOPHOSPHAMIDE [Suspect]
     Indication: CHEMOTHERAPY
     Dosage: UNK
     Dates: start: 20071026, end: 20080220
  3. TAXOTERE [Suspect]
     Indication: CHEMOTHERAPY
     Dosage: UNK
     Dates: start: 20071026, end: 20080220

REACTIONS (2)
  - ALOPECIA [None]
  - OEDEMA [None]
